FAERS Safety Report 16545255 (Version 2)
Quarter: 2019Q3

REPORT INFORMATION
  Report Type: Spontaneous
  Country: JP (occurrence: JP)
  Receive Date: 20190709
  Receipt Date: 20190712
  Transmission Date: 20191004
  Serious: Yes (Other)
  Sender: FDA-Public Use
  Company Number: JP-PFIZER INC-2019284556

PATIENT

DRUGS (1)
  1. LYRICA [Suspect]
     Active Substance: PREGABALIN
     Dosage: 25 MG, DAILY (BEFORE BEDTIME)
     Dates: start: 20190610

REACTIONS (3)
  - Cataract [Unknown]
  - Blindness [Unknown]
  - Visual field defect [Unknown]
